FAERS Safety Report 25509985 (Version 1)
Quarter: 2025Q3

REPORT INFORMATION
  Report Type: Spontaneous
  Country: JP (occurrence: JP)
  Receive Date: 20250703
  Receipt Date: 20250703
  Transmission Date: 20251021
  Serious: Yes (Hospitalization, Other)
  Sender: ROCHE
  Company Number: JP-CHUGAI-2025020660

PATIENT
  Age: 47 Year
  Sex: Male
  Weight: 62.9 kg

DRUGS (2)
  1. HEMLIBRA [Suspect]
     Active Substance: EMICIZUMAB-KXWH
     Indication: Haemophilia A with anti factor VIII
     Dosage: 90 MILLIGRAM, ONCE/WEEK
     Route: 050
     Dates: start: 2018, end: 2023
  2. HEMLIBRA [Suspect]
     Active Substance: EMICIZUMAB-KXWH
     Dosage: 90 MILLIGRAM, ONCE/WEEK
     Route: 050
     Dates: start: 2023

REACTIONS (5)
  - Haemorrhagic cholecystitis [Recovering/Resolving]
  - Anaemia [Unknown]
  - Injury [Unknown]
  - Muscle haemorrhage [Unknown]
  - Cholelithiasis [Unknown]

NARRATIVE: CASE EVENT DATE: 20210101
